FAERS Safety Report 4991066-9 (Version None)
Quarter: 2006Q2

REPORT INFORMATION
  Report Type: 
  Country: None (occurrence: None)
  Receive Date: 20060428
  Receipt Date: 20060418
  Transmission Date: 20061013
  Serious: Yes (Death)
  Sender: FDA-Public Use
  Company Number: 2006-DE-01947GD

PATIENT

DRUGS (2)
  1. MORPHINE [Suspect]
  2. ASPIRIN [Concomitant]

REACTIONS (1)
  - OVERDOSE [None]
